FAERS Safety Report 25196028 (Version 1)
Quarter: 2025Q2

REPORT INFORMATION
  Report Type: Spontaneous
  Country: CN (occurrence: CN)
  Receive Date: 20250415
  Receipt Date: 20250415
  Transmission Date: 20250716
  Serious: Yes (Other)
  Sender: Teyro Labs
  Company Number: CN-TEYRO-2025-TY-000252

PATIENT
  Age: 72 Year
  Sex: Female
  Weight: 43.4 kg

DRUGS (2)
  1. GEMCITABINE [Suspect]
     Active Substance: GEMCITABINE
     Indication: Pancreatic carcinoma stage III
     Route: 065
  2. PACLITAXEL [Suspect]
     Active Substance: PACLITAXEL
     Indication: Pancreatic carcinoma stage III
     Route: 065

REACTIONS (2)
  - Neoplasm progression [Unknown]
  - Myelosuppression [Unknown]
